FAERS Safety Report 26181895 (Version 1)
Quarter: 2025Q4

REPORT INFORMATION
  Report Type: Spontaneous
  Country: EU (occurrence: EU)
  Receive Date: 20251221
  Receipt Date: 20251221
  Transmission Date: 20260118
  Serious: Yes (Hospitalization, Other)
  Sender: TEVA
  Company Number: EU-TEVA-VS-3404176

PATIENT
  Age: 34 Year
  Sex: Male

DRUGS (8)
  1. SERTRALINE [Suspect]
     Active Substance: SERTRALINE HYDROCHLORIDE
     Indication: Depression
     Route: 065
  2. OXYCODONE [Suspect]
     Active Substance: OXYCODONE
     Indication: Visceral pain
     Route: 048
  3. OXYCODONE [Suspect]
     Active Substance: OXYCODONE
     Indication: Visceral pain
     Route: 048
  4. FENTANYL [Suspect]
     Active Substance: FENTANYL
     Indication: Headache
     Dosage: INTRANASAL
     Route: 065
  5. METAMIZOLE [Concomitant]
     Active Substance: METAMIZOLE
     Indication: Headache
     Route: 065
  6. ACETAMINOPHEN [Concomitant]
     Active Substance: ACETAMINOPHEN
     Indication: Visceral pain
     Dosage: TIME INTERVAL: 0.33333333 DAYS
     Route: 065
  7. QUETIAPINE [Concomitant]
     Active Substance: QUETIAPINE
     Indication: Depression
     Route: 065
  8. KETOPROFEN [Concomitant]
     Active Substance: KETOPROFEN
     Indication: Headache
     Route: 048

REACTIONS (3)
  - Functional gastrointestinal disorder [Unknown]
  - Drug ineffective [Unknown]
  - Reversible cerebral vasoconstriction syndrome [Recovering/Resolving]
